FAERS Safety Report 5469066-4 (Version None)
Quarter: 2007Q3

REPORT INFORMATION
  Report Type: 
  Country: None (occurrence: None)
  Receive Date: 20070820
  Receipt Date: 20070611
  Transmission Date: 20080115
  Serious: No
  Sender: FDA-Public Use
  Company Number: WAES 0707USA02037

PATIENT
  Age: 50 Year
  Sex: Male

DRUGS (1)
  1. JANUVIA [Suspect]
     Indication: DIABETES MELLITUS
     Dosage: 50 MG DAILY PO, 100 MG DAILY PO
     Route: 048

REACTIONS (2)
  - CREATININE RENAL CLEARANCE INCREASED [None]
  - THERAPEUTIC RESPONSE UNEXPECTED [None]
